FAERS Safety Report 9224745 (Version 1)
Quarter: 2013Q2

REPORT INFORMATION
  Report Type: Spontaneous
  Country: US (occurrence: None)
  Receive Date: 20130409
  Receipt Date: 20130409
  Transmission Date: 20140414
  Serious: Yes (Hospitalization, Other)
  Sender: FDA-Public Use
  Company Number: 2013P1004482

PATIENT
  Age: 82 Year
  Sex: Female
  Weight: 79.5 kg

DRUGS (5)
  1. AMIODARONE [Suspect]
  2. DABIGATRAN [Suspect]
  3. CARVEDILOL [Concomitant]
  4. SIMVASTATIN [Concomitant]
  5. FUROSEMIDE [Concomitant]

REACTIONS (9)
  - Overdose [None]
  - Asthenia [None]
  - Dizziness [None]
  - Decreased appetite [None]
  - Nausea [None]
  - Vomiting [None]
  - Thrombocytopenia [None]
  - Dehydration [None]
  - Gastroenteritis [None]
